FAERS Safety Report 15550557 (Version 1)
Quarter: 2018Q4

REPORT INFORMATION
  Report Type: Spontaneous
  Country: US (occurrence: US)
  Receive Date: 20181019
  Receipt Date: 20181019
  Transmission Date: 20190205
  Serious: No
  Sender: FDA-Public Use
  Company Number: None

PATIENT
  Age: 71 Year
  Sex: Female

DRUGS (1)
  1. BOTOX [Suspect]
     Active Substance: ONABOTULINUMTOXINA
     Dates: start: 20180725, end: 20180725

REACTIONS (7)
  - Eyelid ptosis [None]
  - Paraesthesia [None]
  - Neck pain [None]
  - Hyperhidrosis [None]
  - Pruritus [None]
  - Myalgia [None]
  - Eye pain [None]

NARRATIVE: CASE EVENT DATE: 20180725
